FAERS Safety Report 10005260 (Version 1)
Quarter: 2014Q1

REPORT INFORMATION
  Report Type: Spontaneous
  Country: IE (occurrence: IE)
  Receive Date: 20140312
  Receipt Date: 20140312
  Transmission Date: 20141002
  Serious: Yes (Hospitalization, Other)
  Sender: FDA-Public Use
  Company Number: PHHY2014IE028682

PATIENT
  Age: 34 Year
  Sex: Female
  Weight: 85.6 kg

DRUGS (6)
  1. ZOLEDRONATE [Suspect]
     Indication: HUNGRY BONE SYNDROME
  2. CINACALCET [Suspect]
     Dosage: 30 MG, PER DAY
  3. CINACALCET [Suspect]
     Dosage: 60 MG, PER DAY
  4. PHOSPHATE-SANDOZ [Concomitant]
     Dosage: 3 G, (96MMOL, UP TO SIX TABLETS DAILY)
  5. PHOSPHATE-SANDOZ [Concomitant]
  6. VIT D [Concomitant]
     Dosage: 6 UG, PER DAY

REACTIONS (5)
  - Hypersensitivity [Unknown]
  - Acute phase reaction [Unknown]
  - Angioedema [Unknown]
  - Transaminases increased [Unknown]
  - Hypocalcaemia [Unknown]
